FAERS Safety Report 24075121 (Version 1)
Quarter: 2024Q3

REPORT INFORMATION
  Report Type: Spontaneous
  Country: US (occurrence: None)
  Receive Date: 20240710
  Receipt Date: 20240710
  Transmission Date: 20241016
  Serious: No
  Sender: Public
  Company Number: None

PATIENT
  Sex: 0

DRUGS (2)
  1. VERAPAMIL [Suspect]
     Active Substance: VERAPAMIL HYDROCHLORIDE
  2. KEPPRA [Suspect]
     Active Substance: LEVETIRACETAM

REACTIONS (4)
  - Migraine [None]
  - Rash [None]
  - Abdominal pain upper [None]
  - Drug intolerance [None]
